FAERS Safety Report 20217104 (Version 1)
Quarter: 2021Q4

REPORT INFORMATION
  Report Type: Spontaneous
  Country: US (occurrence: US)
  Receive Date: 20211222
  Receipt Date: 20211222
  Transmission Date: 20220303
  Serious: Yes (Hospitalization, Other)
  Sender: FDA-Public Use
  Company Number: US-JNJFOC-20211239520

PATIENT
  Age: 42 Year
  Sex: Male

DRUGS (1)
  1. INVOKANA [Suspect]
     Active Substance: CANAGLIFLOZIN
     Indication: Diabetes mellitus inadequate control
     Route: 048
     Dates: start: 2016

REACTIONS (4)
  - Abscess limb [Unknown]
  - Balanoposthitis [Recovered/Resolved]
  - Toe amputation [Unknown]
  - Polydipsia [Unknown]

NARRATIVE: CASE EVENT DATE: 20160101
